FAERS Safety Report 20196403 (Version 3)
Quarter: 2022Q1

REPORT INFORMATION
  Report Type: Report from Study
  Country: CO (occurrence: CO)
  Receive Date: 20211216
  Receipt Date: 20220203
  Transmission Date: 20220423
  Serious: Yes (Other)
  Sender: FDA-Public Use
  Company Number: CO-BAYER-2021A267945

PATIENT

DRUGS (3)
  1. EYLEA [Suspect]
     Active Substance: AFLIBERCEPT
     Indication: Diabetic retinal oedema
     Dosage: 40 MG/ML, 2 MG, ONCE IN RIGHT EYE. TOTAL NUMBER OF THREE INJECTIONS INTO RIGHT EYE
     Route: 031
     Dates: start: 20201118, end: 20201118
  2. EYLEA [Suspect]
     Active Substance: AFLIBERCEPT
     Dosage: 40 MG/ML, 2 MG, ONCE IN RIGHT EYE
     Route: 031
     Dates: start: 20210318, end: 20210318
  3. EYLEA [Suspect]
     Active Substance: AFLIBERCEPT
     Dosage: 40 MG/ML, 2 MG, ONCE IN RIGHT EYE
     Route: 031
     Dates: start: 20210524, end: 20210524

REACTIONS (2)
  - Blindness [Not Recovered/Not Resolved]
  - Drug ineffective [Unknown]

NARRATIVE: CASE EVENT DATE: 20211101
